FAERS Safety Report 17058940 (Version 1)
Quarter: 2019Q4

REPORT INFORMATION
  Report Type: Spontaneous
  Country: US (occurrence: US)
  Receive Date: 20191121
  Receipt Date: 20191121
  Transmission Date: 20200122
  Serious: No
  Sender: FDA-Public Use
  Company Number: US-PFIZER INC-2019500902

PATIENT
  Age: 22 Year
  Sex: Female
  Weight: 52.7 kg

DRUGS (2)
  1. VORICONAZOLE. [Interacting]
     Active Substance: VORICONAZOLE
     Dosage: UNK
  2. CRIZOTINIB [Suspect]
     Active Substance: CRIZOTINIB
     Indication: ALK GENE REARRANGEMENT POSITIVE
     Dosage: 250 MG, 1X/DAY

REACTIONS (4)
  - Blood bilirubin increased [Unknown]
  - Liver function test increased [Unknown]
  - Drug interaction [Unknown]
  - Dysphagia [Unknown]

NARRATIVE: CASE EVENT DATE: 20191115
